FAERS Safety Report 16867357 (Version 1)
Quarter: 2019Q4

REPORT INFORMATION
  Report Type: Spontaneous
  Country: US (occurrence: US)
  Receive Date: 20190929
  Receipt Date: 20190929
  Transmission Date: 20200122
  Serious: Yes (Life-Threatening, Hospitalization)
  Sender: FDA-Public Use
  Company Number: None

PATIENT
  Age: 60 Year
  Sex: Male
  Weight: 74 kg

DRUGS (1)
  1. WARFARIN [Suspect]
     Active Substance: WARFARIN
     Dosage: ?          OTHER FREQUENCY:10MG MF, 7.5MG ROW;?

REACTIONS (5)
  - Gastrointestinal haemorrhage [None]
  - Haematochezia [None]
  - Alcohol withdrawal syndrome [None]
  - Haemoglobin decreased [None]
  - International normalised ratio increased [None]

NARRATIVE: CASE EVENT DATE: 20190927
